FAERS Safety Report 23645668 (Version 1)
Quarter: 2024Q1

REPORT INFORMATION
  Report Type: Spontaneous
  Country: PL (occurrence: PL)
  Receive Date: 20240319
  Receipt Date: 20240319
  Transmission Date: 20240410
  Serious: Yes (Hospitalization, Other)
  Sender: FDA-Public Use
  Company Number: PL-NOVOPROD-1190861

PATIENT
  Age: 36 Year
  Sex: Female

DRUGS (3)
  1. TRESIBA [Suspect]
     Active Substance: INSULIN DEGLUDEC
     Indication: Type 1 diabetes mellitus
     Dosage: 34 IU, QD
     Route: 058
  2. TRESIBA [Suspect]
     Active Substance: INSULIN DEGLUDEC
     Dosage: ADJUSTABLE DOSES BASED ON CONVERSION FACTORS
     Route: 058
  3. NOVORAPID [Suspect]
     Active Substance: INSULIN ASPART
     Indication: Type 1 diabetes mellitus
     Dosage: ADJUSTABLE DOSES BASED ON CONVERSION FACTORS
     Route: 058

REACTIONS (4)
  - Diabetic ketoacidosis [Unknown]
  - Hyperglycaemia [Unknown]
  - Multiple use of single-use product [Unknown]
  - Lack of application site rotation [Unknown]
